FAERS Safety Report 4644119-9 (Version None)
Quarter: 2005Q2

REPORT INFORMATION
  Report Type: 
  Country: None (occurrence: None)
  Receive Date: 20050425
  Receipt Date: 20050413
  Transmission Date: 20051028
  Serious: Yes (Other)
  Sender: FDA-Public Use
  Company Number: S2005US05100

PATIENT
  Age: 48 Year
  Sex: Female

DRUGS (1)
  1. ADVAIR DISKUS 100/50 [Suspect]
     Indication: DRUG USE FOR UNKNOWN INDICATION
     Route: 055

REACTIONS (5)
  - ASTHMA [None]
  - HOT FLUSH [None]
  - SINUSITIS [None]
  - VERTIGO [None]
  - WEIGHT INCREASED [None]
